FAERS Safety Report 10690488 (Version 1)
Quarter: 2015Q1

REPORT INFORMATION
  Report Type: Spontaneous
  Country: US (occurrence: None)
  Receive Date: 20150102
  Receipt Date: 20150102
  Transmission Date: 20150720
  Serious: No
  Sender: FDA-Public Use
  Company Number: None

PATIENT
  Age: 37 Year
  Sex: Female
  Weight: 81.65 kg

DRUGS (1)
  1. MIRENA [Suspect]
     Active Substance: LEVONORGESTREL

REACTIONS (9)
  - Abdominal pain [None]
  - Muscle spasms [None]
  - Pain [None]
  - Syncope [None]
  - Thrombosis [None]
  - Menstruation irregular [None]
  - Vaginal haemorrhage [None]
  - Product quality issue [None]
  - Coital bleeding [None]
